FAERS Safety Report 7723763-6 (Version None)
Quarter: 2011Q3

REPORT INFORMATION
  Report Type: 
  Country: None (occurrence: None)
  Receive Date: 20110829
  Receipt Date: 20110819
  Transmission Date: 20111222
  Serious: Yes (Other)
  Sender: FDA-Public Use
  Company Number: 1000021728

PATIENT
  Age: 72 Year
  Sex: Male
  Weight: 83.46 kg

DRUGS (11)
  1. VITAMIN D (VITAMIN D) (VITAMIN D) [Concomitant]
  2. COREG (CARVEDILOL) (CARVEDILOL) [Concomitant]
  3. TRAZODONE (TRAZODONE) (TRAZODONE) [Concomitant]
  4. POTASSIUM (POTASSIUM) (POTASSIUM) [Concomitant]
  5. BYSTOLIC [Suspect]
     Indication: CORONARY ARTERY DISEASE
     Dosage: 5 MG (5 MG, 1 IN 1 D)
     Dates: start: 20110211, end: 20110625
  6. OMEPRAZOLE [Concomitant]
  7. LASIX [Concomitant]
  8. CLONAZEPAM [Concomitant]
  9. METOPROLOL SUCCINATE [Concomitant]
  10. LIPITOR [Concomitant]
  11. ASPIRIN [Concomitant]

REACTIONS (1)
  - CARDIAC FAILURE [None]
